FAERS Safety Report 8740586 (Version 4)
Quarter: 2013Q1

REPORT INFORMATION
  Report Type: Spontaneous
  Country: US (occurrence: US)
  Receive Date: 20120823
  Receipt Date: 20130118
  Transmission Date: 20140127
  Serious: Yes (Hospitalization, Other)
  Sender: FDA-Public Use
  Company Number: US-009507513-1208USA007405

PATIENT
  Sex: 0

DRUGS (3)
  1. NUVARING [Suspect]
     Indication: CONTRACEPTION
     Dosage: UNK
     Route: 067
     Dates: start: 20100619, end: 20101027
  2. NUVARING [Suspect]
     Indication: CONTRACEPTION
  3. YASMIN [Suspect]
     Indication: CONTRACEPTION
     Dosage: 0.3 MG, UNK
     Route: 048
     Dates: start: 20070413, end: 200804

REACTIONS (4)
  - Pleural effusion [Unknown]
  - Pulmonary embolism [Unknown]
  - Thrombosis [Unknown]
  - Pulmonary infarction [Unknown]
